FAERS Safety Report 6367939-1 (Version None)
Quarter: 2009Q3

REPORT INFORMATION
  Report Type: 
  Country: None (occurrence: None)
  Receive Date: 20090922
  Receipt Date: 20090126
  Transmission Date: 20100115
  Serious: No
  Sender: FDA-Public Use
  Company Number: A0765297A

PATIENT
  Age: 67 Year
  Sex: Female

DRUGS (4)
  1. SEREVENT [Suspect]
     Indication: CHRONIC OBSTRUCTIVE PULMONARY DISEASE
     Dosage: 1PUFF TWICE PER DAY
     Route: 055
     Dates: start: 20081018, end: 20081027
  2. PROTONIX [Concomitant]
  3. MICARDIS HCT [Concomitant]
  4. ASMANEX TWISTHALER [Concomitant]

REACTIONS (2)
  - CHEST PAIN [None]
  - OROPHARYNGEAL PAIN [None]
